FAERS Safety Report 10667925 (Version 1)
Quarter: 2014Q4

REPORT INFORMATION
  Report Type: Spontaneous
  Country: None (occurrence: None)
  Receive Date: 20141219
  Receipt Date: 20141219
  Transmission Date: 20150529
  Serious: No
  Sender: FDA-Public Use
  Company Number: None

PATIENT

DRUGS (1)
  1. CIPRO [Suspect]
     Active Substance: CIPROFLOXACIN HYDROCHLORIDE

REACTIONS (4)
  - Tendon disorder [None]
  - Foot deformity [None]
  - Eye disorder [None]
  - Ocular hyperaemia [None]

NARRATIVE: CASE EVENT DATE: 20140903
